FAERS Safety Report 8953368 (Version 1)
Quarter: 2012Q4

REPORT INFORMATION
  Report Type: 
  Country: US (occurrence: US)
  Receive Date: 20121206
  Receipt Date: 20121206
  Transmission Date: 20130627
  Serious: Yes (Hospitalization, Other)
  Sender: FDA-Public Use
  Company Number: US-ROXANE LABORATORIES, INC.-2012-RO-02483RO

PATIENT
  Age: 45 Year
  Sex: Male

DRUGS (14)
  1. METHADONE [Suspect]
     Indication: PAIN MANAGEMENT
  2. DASATINIB [Suspect]
     Indication: NON-SMALL CELL LUNG CANCER
     Dosage: 70 mg
     Route: 048
     Dates: start: 20120313, end: 20121012
  3. ERLOTINIB [Suspect]
     Indication: NON-SMALL CELL LUNG CANCER
     Dosage: 150 mg
     Route: 048
     Dates: start: 20120313
  4. AMBIEN [Concomitant]
  5. ARTHROTEC [Concomitant]
  6. DOXYCYCLINE [Concomitant]
  7. LEXAPRO [Concomitant]
  8. LOVENOX [Concomitant]
  9. LYRICA [Concomitant]
  10. MS CONTIN [Concomitant]
  11. NORCO [Concomitant]
  12. SENOKOT [Concomitant]
  13. TARCEVA [Concomitant]
  14. TOPAMAX [Concomitant]

REACTIONS (7)
  - Pulmonary embolism [Unknown]
  - Pain [Unknown]
  - Confusional state [Recovered/Resolved]
  - Nausea [Unknown]
  - Vomiting [Unknown]
  - Dyspnoea [Unknown]
  - Pleural effusion [Unknown]
